FAERS Safety Report 8896054 (Version 1)
Quarter: 2012Q4

REPORT INFORMATION
  Report Type: 
  Country: US (occurrence: US)
  Receive Date: 20121108
  Receipt Date: 20121108
  Transmission Date: 20130627
  Serious: Yes (Other)
  Sender: FDA-Public Use
  Company Number: US-BAYER-2012-116473

PATIENT
  Age: 57 Year
  Sex: Female
  Weight: 61.68 kg

DRUGS (1)
  1. BAYER ASPIRIN REGIMEN ADULT LOW STRENGTH [Suspect]
     Indication: MYOCARDIAL INFARCT PROPHYLAXIS
     Dosage: 1 Unit

REACTIONS (2)
  - Dysplasia [Not Recovered/Not Resolved]
  - low segment barretts [Not Recovered/Not Resolved]
